FAERS Safety Report 6818808-1 (Version None)
Quarter: 2010Q2

REPORT INFORMATION
  Report Type: 
  Country: None (occurrence: None)
  Receive Date: 20100630
  Receipt Date: 20100625
  Transmission Date: 20101027
  Serious: Yes (Death, Other)
  Sender: FDA-Public Use
  Company Number: 2010US002519

PATIENT
  Age: 73 Year
  Sex: Male

DRUGS (6)
  1. PROGRAF [Suspect]
     Indication: RENAL TRANSPLANT
     Dosage: 5 MG, /D
  2. PREDNISOLONE [Concomitant]
  3. MYCOPHENOLATE MOFETIL [Concomitant]
  4. TRIMETOPRIM (TRIMETHOPRIM) [Concomitant]
  5. LOVASTATIN [Concomitant]
  6. FUROSEMIDA (FUROSEMIDE) [Concomitant]

REACTIONS (2)
  - ARTERIAL THROMBOSIS [None]
  - PULMONARY EMBOLISM [None]
